FAERS Safety Report 11411908 (Version 4)
Quarter: 2016Q1

REPORT INFORMATION
  Report Type: Report from Study
  Country: GB (occurrence: GB)
  Receive Date: 20150824
  Receipt Date: 20160219
  Transmission Date: 20160525
  Serious: Yes (Life-Threatening, Hospitalization, Other)
  Sender: FDA-Public Use
  Company Number: GB-SA-2015SA126691

PATIENT
  Age: 54 Year
  Sex: Female
  Weight: 88.6 kg

DRUGS (12)
  1. OMEPRAZOLE. [Concomitant]
     Active Substance: OMEPRAZOLE
  2. SIMVASTATIN. [Concomitant]
     Active Substance: SIMVASTATIN
  3. ACYCLOVIR. [Concomitant]
     Active Substance: ACYCLOVIR
     Indication: PROPHYLAXIS
     Route: 048
     Dates: start: 20150601, end: 20150702
  4. LEMTRADA [Suspect]
     Active Substance: ALEMTUZUMAB
     Indication: MULTIPLE SCLEROSIS RELAPSE
     Route: 041
     Dates: start: 20150601, end: 20150605
  5. PREMARIN [Concomitant]
     Active Substance: ESTROGENS, CONJUGATED
  6. PIRITON [Concomitant]
     Active Substance: CHLORPHENIRAMINE MALEATE
     Indication: RASH
     Route: 048
     Dates: start: 20150601, end: 20150605
  7. BACLOFEN. [Concomitant]
     Active Substance: BACLOFEN
  8. CHLORPHENAMINE [Concomitant]
     Active Substance: CHLORPHENIRAMINE MALEATE
  9. FLUOXETINE [Concomitant]
     Active Substance: FLUOXETINE HYDROCHLORIDE
  10. SALBUTAMOL [Concomitant]
     Active Substance: ALBUTEROL
  11. METHYLPREDNISOLONE. [Concomitant]
     Active Substance: METHYLPREDNISOLONE
     Route: 042
     Dates: start: 20150601, end: 20150603
  12. PARACETAMOL [Concomitant]
     Active Substance: ACETAMINOPHEN

REACTIONS (15)
  - Pneumocystis jirovecii pneumonia [Recovering/Resolving]
  - Pyrexia [Recovered/Resolved]
  - Immunosuppression [Unknown]
  - Opportunistic infection [Recovering/Resolving]
  - Feeling hot [Unknown]
  - Acute respiratory distress syndrome [Recovered/Resolved]
  - Pneumonia cytomegaloviral [Recovered/Resolved]
  - Productive cough [Recovered/Resolved]
  - Haemoptysis [Unknown]
  - Exercise tolerance decreased [Recovered/Resolved]
  - Dyspnoea [Recovered/Resolved]
  - Lethargy [Not Recovered/Not Resolved]
  - Respiratory failure [Recovering/Resolving]
  - Malaise [Not Recovered/Not Resolved]
  - Rash [Unknown]

NARRATIVE: CASE EVENT DATE: 201506
